FAERS Safety Report 21267556 (Version 1)
Quarter: 2022Q3

REPORT INFORMATION
  Report Type: Spontaneous
  Country: KR (occurrence: KR)
  Receive Date: 20220829
  Receipt Date: 20220829
  Transmission Date: 20221027
  Serious: No
  Sender: FDA-Public Use
  Company Number: KR-PADAGIS-2022PAD00462

PATIENT

DRUGS (3)
  1. CETIRIZINE HYDROCHLORIDE [Suspect]
     Active Substance: CETIRIZINE HYDROCHLORIDE
     Indication: Skin lesion
     Dosage: 5 MG EVERY DAY
     Route: 065
  2. PREDNISOLONE [Suspect]
     Active Substance: PREDNISOLONE
     Indication: Skin lesion
     Dosage: 10 MG TWICE A DAY
     Route: 065
  3. CEFACLOR [Suspect]
     Active Substance: CEFACLOR
     Indication: Skin lesion
     Dosage: 375 MG TWICE A DAY
     Route: 065

REACTIONS (1)
  - Drug ineffective for unapproved indication [Unknown]
